FAERS Safety Report 8179375-6 (Version None)
Quarter: 2012Q1

REPORT INFORMATION
  Report Type: 
  Country: None (occurrence: None)
  Receive Date: 20120302
  Receipt Date: 20120222
  Transmission Date: 20120608
  Serious: Yes (Other)
  Sender: FDA-Public Use
  Company Number: NZ-MUTUAL PHARMACEUTICAL COMPANY, INC.-FDER20120002

PATIENT
  Age: 81 Year
  Sex: Male

DRUGS (2)
  1. METOPROLOL TARTRATE [Suspect]
     Indication: PRODUCT USED FOR UNKNOWN INDICATION
     Route: 065
  2. FELODIPINE [Suspect]
     Indication: PRODUCT USED FOR UNKNOWN INDICATION
     Route: 065

REACTIONS (5)
  - GAIT DISTURBANCE [None]
  - LYMPHADENOPATHY [None]
  - ASTHENIA [None]
  - CHRONIC LYMPHOCYTIC LEUKAEMIA [None]
  - JOINT SWELLING [None]
